FAERS Safety Report 17631342 (Version 1)
Quarter: 2020Q2

REPORT INFORMATION
  Report Type: Spontaneous
  Country: US (occurrence: US)
  Receive Date: 20200404
  Receipt Date: 20200404
  Transmission Date: 20200713
  Serious: Yes (Death)
  Sender: FDA-Public Use
  Company Number: None

PATIENT
  Age: 75 Year
  Sex: Female
  Weight: 62.9 kg

DRUGS (19)
  1. POLYETHYLENE GLYCOL [Concomitant]
     Active Substance: POLYETHYLENE GLYCOLS
  2. BUDESONIDE. [Concomitant]
     Active Substance: BUDESONIDE
  3. AFORMOTEROL [Concomitant]
     Active Substance: ARFORMOTEROL
  4. MIRTAZAPINE. [Concomitant]
     Active Substance: MIRTAZAPINE
  5. TACROLUMUS [Concomitant]
  6. MK-3475 (PEMBROLIZUMAB) [Suspect]
     Active Substance: PEMBROLIZUMAB
     Dates: end: 20191016
  7. FLUTICASONE FUROATE-FILANTEROL [Concomitant]
  8. LEVOTHYROXINE. [Concomitant]
     Active Substance: LEVOTHYROXINE
  9. METOPROLOL SUCCINATE. [Concomitant]
     Active Substance: METOPROLOL SUCCINATE
  10. TRIAMCINOLONE [Concomitant]
     Active Substance: TRIAMCINOLONE
  11. UMEDCLIDINIUM [Concomitant]
  12. FLUTICSONEUMECLIDIN-VILANTER [Concomitant]
  13. LIDOCAINE. [Concomitant]
     Active Substance: LIDOCAINE
  14. ONDANSETRON [Concomitant]
     Active Substance: ONDANSETRON
  15. SENNA [Concomitant]
     Active Substance: SENNA LEAF\SENNOSIDES\SENNOSIDES A AND B
  16. ESOMEPRAZOLE. [Concomitant]
     Active Substance: ESOMEPRAZOLE MAGNESIUM
  17. GABAPENTIN. [Concomitant]
     Active Substance: GABAPENTIN
  18. LORAZEPAM. [Concomitant]
     Active Substance: LORAZEPAM
  19. PROCHORPERAZINE [Concomitant]

REACTIONS (3)
  - Pulmonary function test decreased [None]
  - Pneumonia [None]
  - Malnutrition [None]

NARRATIVE: CASE EVENT DATE: 20200129
